FAERS Safety Report 8581219-5 (Version None)
Quarter: 2012Q3

REPORT INFORMATION
  Report Type: 
  Country: None (occurrence: None)
  Receive Date: 20120809
  Receipt Date: 20120802
  Transmission Date: 20120928
  Serious: Yes (Other)
  Sender: FDA-Public Use
  Company Number: PHEH2012US015167

PATIENT
  Sex: Female

DRUGS (6)
  1. LASIX [Concomitant]
     Indication: FLUID OVERLOAD
     Dosage: 120 MG, QD
     Route: 048
  2. DIOVAN [Suspect]
     Indication: HYPERTENSION
     Dosage: 160 MG, QD
     Route: 048
     Dates: start: 20100701
  3. PAXIL [Concomitant]
     Indication: NERVOUS SYSTEM DISORDER
     Dosage: 20 MG, QD
     Route: 048
  4. CLONAZEPAM [Concomitant]
     Indication: ANXIETY
     Dosage: 0.5 MG, BID
     Route: 048
  5. TEKTURNA [Suspect]
     Indication: BLOOD PRESSURE
     Dosage: 150 MG, QD
     Route: 048
     Dates: start: 20100701
  6. POTASSIUM [Concomitant]
     Dosage: 40 MG, BID
     Route: 048

REACTIONS (7)
  - CARDIAC DISORDER [None]
  - LOSS OF CONSCIOUSNESS [None]
  - BLOOD PRESSURE INADEQUATELY CONTROLLED [None]
  - MYOCARDIAL INFARCTION [None]
  - CEREBROVASCULAR ACCIDENT [None]
  - VISION BLURRED [None]
  - ANXIETY [None]
